FAERS Safety Report 6878651 (Version 1)
Quarter: 2020Q3

REPORT INFORMATION
  Report Type: Report from Study
  Country: DE (occurrence: DE)
  Receive Date: 20090112
  Receipt Date: 20090112
  Transmission Date: 20201105
  Serious: Yes (Other)
  Sender: FDA-Public Use
  Company Number: DE-ROCHE-605222

PATIENT
  Age: 74 Year
  Sex: Male

DRUGS (4)
  1. ZOLEDRONATE [Suspect]
     Active Substance: ZOLEDRONIC ACID
     Dosage: RECEIVED 41 INFUSIONS.
     Route: 042
  2. IBANDRONIC ACID. [Suspect]
     Active Substance: IBANDRONIC ACID
     Route: 065
  3. UNSPECIFIED INGREDIENT [Suspect]
     Active Substance: UNSPECIFIED INGREDIENT
     Route: 065
  4. DOCETAXEL. [Suspect]
     Active Substance: DOCETAXEL
     Dosage: AVERAGE NUMBER OF DOCETAXEL APPLICATIONS WERE 9.3.
     Route: 065

REACTIONS (2)
  - Osteonecrosis [Recovered/Resolved]
  - Anaemia [Unknown]
